FAERS Safety Report 17334579 (Version 1)
Quarter: 2020Q1

REPORT INFORMATION
  Report Type: Spontaneous
  Country: US (occurrence: US)
  Receive Date: 20200128
  Receipt Date: 20200128
  Transmission Date: 20200409
  Serious: No
  Sender: FDA-Public Use
  Company Number: US-UNICHEM PHARMACEUTICALS (USA) INC-UCM201905-000160

PATIENT
  Sex: Female

DRUGS (1)
  1. MELOXICAM TABLETS USP [Suspect]
     Active Substance: MELOXICAM
     Dates: start: 20190422

REACTIONS (3)
  - Diarrhoea [Recovered/Resolved]
  - Malaise [Recovered/Resolved]
  - Chills [Recovered/Resolved]

NARRATIVE: CASE EVENT DATE: 20190424
